FAERS Safety Report 25545872 (Version 1)
Quarter: 2025Q3

REPORT INFORMATION
  Report Type: Spontaneous
  Country: US (occurrence: US)
  Receive Date: 20250712
  Receipt Date: 20250712
  Transmission Date: 20251020
  Serious: Yes (Hospitalization)
  Sender: NOVITIUM PHARMA
  Company Number: US-NOVITIUMPHARMA-2025USNVP01591

PATIENT
  Sex: Male

DRUGS (11)
  1. CARBAMAZEPINE [Suspect]
     Active Substance: CARBAMAZEPINE
     Indication: Hallucination
  2. CARBAMAZEPINE [Suspect]
     Active Substance: CARBAMAZEPINE
  3. LORAZEPAM [Concomitant]
     Active Substance: LORAZEPAM
     Indication: Hallucination
  4. LORAZEPAM [Concomitant]
     Active Substance: LORAZEPAM
  5. HALOPERIDOL [Concomitant]
     Active Substance: HALOPERIDOL
     Indication: Hallucination
  6. HALOPERIDOL [Concomitant]
     Active Substance: HALOPERIDOL
  7. BUPROPION [Concomitant]
     Active Substance: BUPROPION
     Indication: Hallucination
  8. BUPROPION [Concomitant]
     Active Substance: BUPROPION
  9. OLANZAPINE [Concomitant]
     Active Substance: OLANZAPINE
     Indication: Hallucination
  10. OLANZAPINE [Concomitant]
     Active Substance: OLANZAPINE
  11. GUANFACINE [Concomitant]
     Active Substance: GUANFACINE
     Indication: Product used for unknown indication

REACTIONS (1)
  - Condition aggravated [Unknown]
